FAERS Safety Report 5009938-8 (Version None)
Quarter: 2006Q2

REPORT INFORMATION
  Report Type: 
  Country: None (occurrence: None)
  Receive Date: 20060522
  Receipt Date: 20060516
  Transmission Date: 20061013
  Serious: Yes (Life-Threatening, Hospitalization)
  Sender: FDA-Public Use
  Company Number: FR-2006-011771

PATIENT
  Age: 26 Year
  Sex: Female
  Weight: 58 kg

DRUGS (3)
  1. MIRENA [Suspect]
     Dosage: 20 UG, CONT, INTRA-UTERINE
     Route: 015
     Dates: start: 20050929, end: 20060225
  2. ATARAX /CAN/ (HYDROXYZINE HYDROCHLORIDE) COATED TABLET [Suspect]
     Dosage: ORAL
     Route: 048
     Dates: start: 20060112, end: 20060101
  3. (HERBAL LAXATIVE CN VITAFLOR TEA) [Suspect]
     Dosage: ORAL
     Route: 048
     Dates: start: 20051201

REACTIONS (4)
  - ACNE [None]
  - HEPATIC ENCEPHALOPATHY [None]
  - HEPATIC NECROSIS [None]
  - PRURITUS [None]
